FAERS Safety Report 25994166 (Version 1)
Quarter: 2025Q4

REPORT INFORMATION
  Report Type: Other
  Country: CA (occurrence: CA)
  Receive Date: 20251104
  Receipt Date: 20251104
  Transmission Date: 20260118
  Serious: Yes (Other)
  Sender: APOTEX
  Company Number: CA-PGRTD-001152725

PATIENT
  Age: 63 Year
  Sex: Female

DRUGS (3)
  1. BRIMONIDINE TARTRATE\TIMOLOL MALEATE [Suspect]
     Active Substance: BRIMONIDINE TARTRATE\TIMOLOL MALEATE
     Indication: Intraocular pressure increased
     Dosage: 2 EVERY 1 DAYS
     Route: 047
  2. BRIMONIDINE TARTRATE\TIMOLOL MALEATE [Suspect]
     Active Substance: BRIMONIDINE TARTRATE\TIMOLOL MALEATE
     Indication: Glaucoma
  3. TRAVOPROST [Concomitant]
     Active Substance: TRAVOPROST
     Route: 065

REACTIONS (2)
  - Intraocular pressure increased [Recovering/Resolving]
  - Eye pain [Recovering/Resolving]
